FAERS Safety Report 5905495-X (Version None)
Quarter: 2008Q4

REPORT INFORMATION
  Report Type: 
  Country: None (occurrence: None)
  Receive Date: 20081002
  Receipt Date: 20080922
  Transmission Date: 20090506
  Serious: Yes (Hospitalization)
  Sender: FDA-Public Use
  Company Number: BE-JNJFOC-20080301879

PATIENT
  Sex: Male
  Weight: 45 kg

DRUGS (5)
  1. TMC125 [Suspect]
     Route: 048
  2. TMC125 [Suspect]
     Indication: HIV INFECTION
     Route: 048
  3. MK-0518 [Concomitant]
     Indication: HIV INFECTION
     Route: 048
  4. VIREAD [Concomitant]
     Indication: HIV INFECTION
     Route: 048
  5. COMBIVIR [Concomitant]
     Indication: HIV INFECTION
     Route: 048

REACTIONS (3)
  - DISSEMINATED CYTOMEGALOVIRAL INFECTION [None]
  - MICROSPORIDIA INFECTION [None]
  - PANCYTOPENIA [None]
